FAERS Safety Report 17242324 (Version 2)
Quarter: 2020Q1

REPORT INFORMATION
  Report Type: Report from Study
  Country: US (occurrence: US)
  Receive Date: 20200107
  Receipt Date: 20200305
  Transmission Date: 20200409
  Serious: Yes (Hospitalization)
  Sender: FDA-Public Use
  Company Number: US-KYOWAKIRIN-2019BKK020869

PATIENT

DRUGS (2)
  1. NOURIANZ [Suspect]
     Active Substance: ISTRADEFYLLINE
     Dosage: 20 MG, DAILY
     Route: 048
     Dates: start: 20200213
  2. NOURIANZ [Suspect]
     Active Substance: ISTRADEFYLLINE
     Indication: PARKINSON^S DISEASE
     Dosage: UNK
     Route: 065
     Dates: start: 20191218

REACTIONS (5)
  - Hospitalisation [Not Recovered/Not Resolved]
  - Nausea [Unknown]
  - Fall [Unknown]
  - Vision blurred [Unknown]
  - Dyskinesia [Unknown]

NARRATIVE: CASE EVENT DATE: 201912
